FAERS Safety Report 8132510-8 (Version None)
Quarter: 2012Q1

REPORT INFORMATION
  Report Type: 
  Country: None (occurrence: None)
  Receive Date: 20120213
  Receipt Date: 20120209
  Transmission Date: 20120608
  Serious: Yes (Other)
  Sender: FDA-Public Use
  Company Number: US-BAYER-2012-013729

PATIENT
  Sex: Female

DRUGS (1)
  1. YASMIN [Suspect]
     Indication: PRODUCT USED FOR UNKNOWN INDICATION
     Dosage: UNK
     Dates: start: 20021001, end: 20040401

REACTIONS (8)
  - PAIN [None]
  - ANXIETY [None]
  - GALLBLADDER DISORDER [None]
  - INJURY [None]
  - GALLBLADDER PAIN [None]
  - POST CHOLECYSTECTOMY SYNDROME [None]
  - GASTROINTESTINAL DISORDER [None]
  - PSYCHOLOGICAL TRAUMA [None]
